FAERS Safety Report 4727024-9 (Version None)
Quarter: 2005Q3

REPORT INFORMATION
  Report Type: 
  Country: None (occurrence: None)
  Receive Date: 20050726
  Receipt Date: 20050711
  Transmission Date: 20060218
  Serious: Yes (Other)
  Sender: FDA-Public Use
  Company Number: US-2005-004757

PATIENT
  Age: 40 Year
  Sex: Female
  Weight: 54.4 kg

DRUGS (4)
  1. BETASERON [Suspect]
     Dates: start: 20031021, end: 20050401
  2. SYNTHROID [Concomitant]
  3. ATENOLOL [Concomitant]
  4. ACETYLSALICYLIC ACID SRT [Concomitant]

REACTIONS (1)
  - PERICARDITIS [None]
